FAERS Safety Report 6136741-8 (Version None)
Quarter: 2009Q1

REPORT INFORMATION
  Report Type: 
  Country: None (occurrence: None)
  Receive Date: 20090330
  Receipt Date: 20090319
  Transmission Date: 20090719
  Serious: Yes (Other)
  Sender: FDA-Public Use
  Company Number: AU-ASTRAZENECA-2009AP02106

PATIENT
  Sex: Male
  Weight: 103.5 kg

DRUGS (8)
  1. LOSEC [Suspect]
     Indication: GASTROOESOPHAGEAL REFLUX DISEASE
     Route: 048
     Dates: start: 20070503, end: 20080414
  2. LOSEC [Suspect]
     Route: 048
     Dates: start: 20081112
  3. NEXIUM [Suspect]
     Indication: GASTROOESOPHAGEAL REFLUX DISEASE
     Route: 048
     Dates: start: 20050106, end: 20070306
  4. AVAPRO [Concomitant]
     Indication: HYPERTENSION
  5. PERINDOPRIL ERBUMINE [Concomitant]
     Indication: HYPERTENSION
  6. PLAVIX [Concomitant]
     Indication: MYOCARDIAL ISCHAEMIA
  7. SOTALOL HCL [Concomitant]
     Indication: ATRIAL FIBRILLATION
     Dosage: HALF A TABLET DAILY
  8. EZETROL [Concomitant]

REACTIONS (1)
  - BLOOD CHROMOGRANIN A INCREASED [None]
